FAERS Safety Report 9297835 (Version 1)
Quarter: 2013Q2

REPORT INFORMATION
  Report Type: Report from Study
  Country: CZ (occurrence: CZ)
  Receive Date: 20130520
  Receipt Date: 20130520
  Transmission Date: 20140414
  Serious: Yes (Death, Other)
  Sender: FDA-Public Use
  Company Number: PHHY2013CZ049674

PATIENT
  Sex: Female

DRUGS (2)
  1. ZOLEDRONATE [Suspect]
     Indication: METASTASES TO BONE
     Dosage: UNK UKN, UNK
     Dates: start: 20071122
  2. DENOSUMAB [Concomitant]
     Indication: METASTASES TO BONE
     Dosage: UNK UKN, UNK

REACTIONS (4)
  - Death [Fatal]
  - Metastases to bone [Unknown]
  - Osteonecrosis of jaw [Unknown]
  - Pain [Unknown]
